FAERS Safety Report 6463917-2 (Version None)
Quarter: 2009Q4

REPORT INFORMATION
  Report Type: 
  Country: None (occurrence: None)
  Receive Date: 20091201
  Receipt Date: 20091118
  Transmission Date: 20100525
  Serious: Yes (Hospitalization, Other)
  Sender: FDA-Public Use
  Company Number: US-JNJFOC-20091105880

PATIENT
  Sex: Female
  Weight: 58.97 kg

DRUGS (4)
  1. DURAGESIC-100 [Suspect]
     Indication: PANCREATITIS CHRONIC
     Route: 062
     Dates: start: 19970101, end: 20090101
  2. FENTANYL CITRATE [Suspect]
     Indication: PANCREATITIS CHRONIC
     Route: 062
     Dates: start: 20090101, end: 20090101
  3. DURAGESIC-100 [Suspect]
     Route: 062
     Dates: start: 20090101
  4. ATENOLOL [Concomitant]
     Indication: HYPERTENSION
     Route: 048

REACTIONS (11)
  - APPLICATION SITE PRURITUS [None]
  - ARTHROPATHY [None]
  - ARTHROPOD BITE [None]
  - BURSITIS [None]
  - FLUID RETENTION [None]
  - INTERVERTEBRAL DISC PROTRUSION [None]
  - LIMB DISCOMFORT [None]
  - OEDEMA PERIPHERAL [None]
  - OVARIAN CANCER [None]
  - PRODUCT QUALITY ISSUE [None]
  - WRONG TECHNIQUE IN DRUG USAGE PROCESS [None]
